FAERS Safety Report 5408399-4 (Version None)
Quarter: 2007Q3

REPORT INFORMATION
  Report Type: 
  Country: None (occurrence: None)
  Receive Date: 20070806
  Receipt Date: 20070723
  Transmission Date: 20080115
  Serious: Yes (Death)
  Sender: FDA-Public Use
  Company Number: CLOF-10617

PATIENT
  Age: 11 Year
  Sex: Male
  Weight: 37 kg

DRUGS (10)
  1. CLOFARABINE. MFR: GENZYME [Suspect]
     Indication: T-CELL TYPE ACUTE LEUKAEMIA
     Dosage: 40 MG QD IV
     Route: 042
     Dates: start: 20070720, end: 20070720
  2. PREDNISONE TAB [Concomitant]
  3. MORPHINE [Concomitant]
  4. ELITEK [Concomitant]
  5. DEXAMETHASONE 0.5MG TAB [Concomitant]
  6. FLUCONAZOLE [Concomitant]
  7. FAMCICLOVIR [Concomitant]
  8. IBUPROFEN [Concomitant]
  9. OMEPRAZOLE [Concomitant]
  10. RANITIDINE [Concomitant]

REACTIONS (16)
  - AGITATION [None]
  - CAPILLARY LEAK SYNDROME [None]
  - CARDIAC ARREST [None]
  - FEELING ABNORMAL [None]
  - GENERAL PHYSICAL HEALTH DETERIORATION [None]
  - HYPOALBUMINAEMIA [None]
  - MIGRAINE [None]
  - NAUSEA [None]
  - NO THERAPEUTIC RESPONSE [None]
  - PLEURAL HAEMORRHAGE [None]
  - PULMONARY HAEMORRHAGE [None]
  - RENAL FUNCTION TEST ABNORMAL [None]
  - RESPIRATORY ARREST [None]
  - TACHYCARDIA [None]
  - TUMOUR LYSIS SYNDROME [None]
  - VOMITING [None]
